FAERS Safety Report 7528254-3 (Version None)
Quarter: 2011Q2

REPORT INFORMATION
  Report Type: 
  Country: None (occurrence: None)
  Receive Date: 20110607
  Receipt Date: 20101117
  Transmission Date: 20111010
  Serious: No
  Sender: FDA-Public Use
  Company Number: US-ASTRAZENECA-2010SE54796

PATIENT
  Age: 60 Year
  Sex: Female
  Weight: 43.1 kg

DRUGS (3)
  1. OMEPRAZOLE [Suspect]
     Route: 048
  2. SEROQUEL [Suspect]
     Indication: INSOMNIA
     Route: 048
  3. SEROQUEL [Suspect]
     Route: 048
     Dates: start: 20100901

REACTIONS (6)
  - BACK INJURY [None]
  - ANXIETY [None]
  - OROPHARYNGEAL PAIN [None]
  - DRUG DOSE OMISSION [None]
  - INSOMNIA [None]
  - EAR PAIN [None]
